FAERS Safety Report 7859941-5 (Version None)
Quarter: 2011Q4

REPORT INFORMATION
  Report Type: 
  Country: None (occurrence: None)
  Receive Date: 20111021
  Receipt Date: 20100517
  Transmission Date: 20120403
  Serious: Yes (Death, Hospitalization, Other)
  Sender: FDA-Public Use
  Company Number: 2011030075

PATIENT
  Sex: Male

DRUGS (1)
  1. VIVAGLOBIN [Suspect]
     Indication: COMBINED IMMUNODEFICIENCY
     Dosage: (.96 G 1X/WEEK, 2 SITE OVER 60-120 MINUTES SUBCUTANEOUS)
     Route: 058
     Dates: start: 20090528, end: 20090619

REACTIONS (5)
  - GASTROENTERITIS NOROVIRUS [None]
  - LUNG INFECTION PSEUDOMONAL [None]
  - DISEASE COMPLICATION [None]
  - DEVICE RELATED INFECTION [None]
  - EPSTEIN-BARR VIRUS ASSOCIATED LYMPHOPROLIFERATIVE DISORDER [None]
